FAERS Safety Report 6083786-2 (Version None)
Quarter: 2009Q1

REPORT INFORMATION
  Report Type: 
  Country: None (occurrence: None)
  Receive Date: 20090219
  Receipt Date: 20090206
  Transmission Date: 20090719
  Serious: Yes (Other)
  Sender: FDA-Public Use
  Company Number: BR-PFIZER INC-2009153322

PATIENT

DRUGS (4)
  1. FRONTAL [Suspect]
     Indication: ANXIETY
     Dosage: 0.5 MG, 2X/DAY
     Route: 048
     Dates: start: 20050101
  2. ZESTRIL [Suspect]
     Indication: BLOOD PRESSURE
     Dosage: 10 MG,
     Route: 048
     Dates: start: 19890101
  3. PAROXETINE [Suspect]
     Indication: DEPRESSION
     Dosage: 10 MG, 2X/DAY
     Route: 048
     Dates: start: 20050101
  4. ALL OTHER THERAPEUTIC PRODUCTS [Concomitant]
     Dosage: 10 MG, UNK
     Dates: start: 19890101

REACTIONS (9)
  - BLOOD CHOLESTEROL INCREASED [None]
  - BLOOD PRESSURE INCREASED [None]
  - CEREBROVASCULAR ACCIDENT [None]
  - DEPRESSION [None]
  - DRUG INEFFECTIVE [None]
  - DRY MOUTH [None]
  - FEELING ABNORMAL [None]
  - STRESS [None]
  - WEIGHT INCREASED [None]
